FAERS Safety Report 10722588 (Version 1)
Quarter: 2015Q1

REPORT INFORMATION
  Report Type: Spontaneous
  Country: US (occurrence: US)
  Receive Date: 20150120
  Receipt Date: 20150120
  Transmission Date: 20150721
  Serious: No
  Sender: FDA-Public Use
  Company Number: US-TEVA-518104USA

PATIENT
  Sex: Male

DRUGS (1)
  1. DEXTROAMPHETAMINE SULFATE. [Suspect]
     Active Substance: DEXTROAMPHETAMINE SULFATE
     Dosage: VARIES FROM 1.25 MG TABLET TO 20 MG TABLET
     Dates: start: 1999

REACTIONS (4)
  - Sensory disturbance [Unknown]
  - Irritability [Unknown]
  - Insomnia [Unknown]
  - Food interaction [Unknown]
